FAERS Safety Report 5126923-6 (Version None)
Quarter: 2006Q4

REPORT INFORMATION
  Report Type: 
  Country: None (occurrence: None)
  Receive Date: 20061010
  Receipt Date: 20060925
  Transmission Date: 20070319
  Serious: Yes (Hospitalization)
  Sender: FDA-Public Use
  Company Number: 2006119459

PATIENT
  Sex: Female

DRUGS (3)
  1. CELEBREX [Suspect]
     Dosage: ORAL
     Route: 048
     Dates: start: 19991101
  2. BEXTRA [Suspect]
     Dosage: ORAL
     Route: 048
     Dates: start: 20030305, end: 20030404
  3. VIOXX [Suspect]
     Dosage: ORAL
     Route: 048
     Dates: start: 19991001

REACTIONS (2)
  - RASH [None]
  - TRANSIENT ISCHAEMIC ATTACK [None]
